FAERS Safety Report 7318919-0 (Version None)
Quarter: 2011Q1

REPORT INFORMATION
  Report Type: 
  Country: None (occurrence: None)
  Receive Date: 20110228
  Receipt Date: 20110214
  Transmission Date: 20110831
  Serious: Yes (Other)
  Sender: FDA-Public Use
  Company Number: US-ELI_LILLY_AND_COMPANY-US201102003867

PATIENT
  Sex: Female

DRUGS (16)
  1. GLYBURIDE [Concomitant]
  2. LOVASTATIN [Concomitant]
  3. OMEPRAZOLE [Concomitant]
  4. AMLODIPINE [Concomitant]
  5. METFORMIN [Concomitant]
  6. MOTRIN [Concomitant]
  7. GABAPENTIN [Concomitant]
  8. JANUVIA [Concomitant]
  9. HYDROCODONE BITARTRATE [Concomitant]
  10. FORTEO [Suspect]
     Indication: OSTEOPOROSIS
     Dosage: 20 UG, DAILY (1/D)
     Dates: start: 20110104
  11. ACTOS [Concomitant]
  12. ZOLPIDEM [Concomitant]
  13. CYMBALTA [Concomitant]
  14. LISINOPRIL [Concomitant]
  15. LEVOTHROID [Concomitant]
  16. METOPROLOL [Concomitant]

REACTIONS (7)
  - HUMERUS FRACTURE [None]
  - UPPER LIMB FRACTURE [None]
  - MUSCULOSKELETAL DISORDER [None]
  - FALL [None]
  - CONTUSION [None]
  - OEDEMA PERIPHERAL [None]
  - NERVE INJURY [None]
